FAERS Safety Report 8785813 (Version 3)
Quarter: 2013Q1

REPORT INFORMATION
  Report Type: Spontaneous
  Country: JP (occurrence: JP)
  Receive Date: 20120914
  Receipt Date: 20130114
  Transmission Date: 20140127
  Serious: Yes (Hospitalization, Other)
  Sender: FDA-Public Use
  Company Number: PHHY2012JP079642

PATIENT
  Age: 53 Year
  Sex: Female

DRUGS (2)
  1. ZOMETA [Suspect]
     Indication: METASTASES TO BONE
     Dosage: UNK UKN, UNK
     Route: 041
     Dates: start: 200601, end: 201110
  2. CHEMOTHERAPEUTICS [Concomitant]

REACTIONS (5)
  - Fall [Unknown]
  - Atypical femur fracture [Unknown]
  - Femur fracture [Unknown]
  - Pain in extremity [Unknown]
  - Gait disturbance [Unknown]
